FAERS Safety Report 7738232-7 (Version None)
Quarter: 2011Q3

REPORT INFORMATION
  Report Type: 
  Country: None (occurrence: None)
  Receive Date: 20110908
  Receipt Date: 20110902
  Transmission Date: 20111222
  Serious: Yes (Congenital Anomaly, Other)
  Sender: FDA-Public Use
  Company Number: PR-PFIZER INC-2010088602

PATIENT
  Sex: Female
  Weight: 3.062 kg

DRUGS (2)
  1. VIRACEPT [Suspect]
     Indication: ACQUIRED IMMUNODEFICIENCY SYNDROME
     Dosage: 2500 MG, 1X/DAY
     Route: 064
     Dates: start: 20100215
  2. COMBIVIR [Suspect]
     Indication: ACQUIRED IMMUNODEFICIENCY SYNDROME
     Dosage: 2 DF/DAY
     Route: 064
     Dates: start: 20100215

REACTIONS (2)
  - CARDIAC DISORDER [None]
  - MATERNAL EXPOSURE DURING PREGNANCY [None]
